FAERS Safety Report 8989738 (Version 2)
Quarter: 2013Q1

REPORT INFORMATION
  Report Type: Report from Study
  Country: CH (occurrence: CH)
  Receive Date: 20121228
  Receipt Date: 20130110
  Transmission Date: 20140127
  Serious: Yes (Death, Other)
  Sender: FDA-Public Use
  Company Number: CH-ASTELLAS-2012EU009113

PATIENT
  Age: 75 None
  Sex: Male
  Weight: 98.1 kg

DRUGS (1)
  1. ENZALUTAMIDE [Suspect]
     Dosage: 160 MG, UID/QD
     Route: 048
     Dates: start: 20120830, end: 20120919

REACTIONS (5)
  - Anaemia [Fatal]
  - Prostatic haemorrhage [Fatal]
  - Prostatic haemorrhage [Fatal]
  - Renal impairment [Not Recovered/Not Resolved]
  - Liver disorder [Not Recovered/Not Resolved]
